FAERS Safety Report 6332129-5 (Version None)
Quarter: 2009Q3

REPORT INFORMATION
  Report Type: 
  Country: None (occurrence: None)
  Receive Date: 20090828
  Receipt Date: 20090820
  Transmission Date: 20100115
  Serious: Yes (Other)
  Sender: FDA-Public Use
  Company Number: US-BAYER-200928625NA

PATIENT
  Age: 2 Year

DRUGS (1)
  1. KOGENATE FS [Suspect]
     Indication: HAEMOPHILIA

REACTIONS (1)
  - MASS [None]
